FAERS Safety Report 6003105-7 (Version None)
Quarter: 2008Q4

REPORT INFORMATION
  Report Type: 
  Country: None (occurrence: None)
  Receive Date: 20081215
  Receipt Date: 20081215
  Transmission Date: 20090506
  Serious: Yes (Other)
  Sender: FDA-Public Use
  Company Number: None

PATIENT
  Sex: Male
  Weight: 92.0802 kg

DRUGS (2)
  1. LEVAQUIN [Suspect]
     Indication: PNEUMONIA
     Dosage: ONE TAB EACH DAY PO
     Route: 048
     Dates: start: 20081209, end: 20081212
  2. DOXYCYCLINE [Suspect]
     Dosage: ONE TAB TWICE EACH DAT PO
     Route: 048
     Dates: start: 20081209, end: 20081212

REACTIONS (3)
  - DIARRHOEA [None]
  - PAIN IN EXTREMITY [None]
  - PARAESTHESIA [None]
